FAERS Safety Report 12248559 (Version 1)
Quarter: 2016Q2

REPORT INFORMATION
  Report Type: Spontaneous
  Country: US (occurrence: None)
  Receive Date: 20160407
  Receipt Date: 20160407
  Transmission Date: 20160815
  Serious: Yes (Other)
  Sender: FDA-Public Use
  Company Number: None

PATIENT
  Age: 47 Year
  Sex: Female
  Weight: 68.04 kg

DRUGS (9)
  1. AMPYRA [Suspect]
     Active Substance: DALFAMPRIDINE
     Indication: MULTIPLE SCLEROSIS
     Route: 048
     Dates: start: 20150401, end: 20160404
  2. SERTRALINE [Concomitant]
     Active Substance: SERTRALINE HYDROCHLORIDE
  3. FOMNAPUR [Concomitant]
  4. ZOLPIDEM [Concomitant]
     Active Substance: ZOLPIDEM\ZOLPIDEM TARTRATE
  5. NAPROXEN. [Concomitant]
     Active Substance: NAPROXEN
  6. BACLOFEN. [Concomitant]
     Active Substance: BACLOFEN
  7. IMODIUM [Concomitant]
     Active Substance: LOPERAMIDE HYDROCHLORIDE
  8. LOSARTAN. [Concomitant]
     Active Substance: LOSARTAN
  9. ROPINIROLE. [Concomitant]
     Active Substance: ROPINIROLE

REACTIONS (7)
  - Pneumonia [None]
  - Multiple sclerosis [None]
  - Musculoskeletal disorder [None]
  - Fall [None]
  - Blood pressure decreased [None]
  - Blood pressure increased [None]
  - Tremor [None]

NARRATIVE: CASE EVENT DATE: 20160302
